FAERS Safety Report 17359764 (Version 1)
Quarter: 2020Q1

REPORT INFORMATION
  Report Type: Spontaneous
  Country: SE (occurrence: SE)
  Receive Date: 20200203
  Receipt Date: 20200203
  Transmission Date: 20200409
  Serious: Yes (Hospitalization)
  Sender: FDA-Public Use
  Company Number: SE-TEVA-2020-SE-1177346

PATIENT
  Age: 85 Year
  Sex: Male

DRUGS (10)
  1. METOPROLOL. [Suspect]
     Active Substance: METOPROLOL
     Dosage: 100 MILLIGRAM
     Route: 065
     Dates: end: 20191209
  2. MADOPARK DEPOT [Concomitant]
  3. FURIX [Concomitant]
  4. SPIRONOLAKTON [Concomitant]
     Active Substance: SPIRONOLACTONE
  5. MADOPARK QUICK MITE [Concomitant]
     Active Substance: BENSERAZIDE HYDROCHLORIDE\LEVODOPA
  6. AZILECT [Concomitant]
     Active Substance: RASAGILINE MESYLATE
  7. MADOPARK [Concomitant]
     Active Substance: BENSERAZIDE HYDROCHLORIDE\LEVODOPA
  8. SIMVASTATIN. [Concomitant]
     Active Substance: SIMVASTATIN
  9. CLOPIDOGREL [Concomitant]
     Active Substance: CLOPIDOGREL BISULFATE
  10. IMOVANE [Concomitant]
     Active Substance: ZOPICLONE
     Dosage: VB

REACTIONS (3)
  - Hypotension [Recovered/Resolved]
  - Sinus bradycardia [Recovered/Resolved]
  - Chest pain [Recovered/Resolved]

NARRATIVE: CASE EVENT DATE: 20191209
